FAERS Safety Report 6729118 (Version 2)
Quarter: 2013Q1

REPORT INFORMATION
  Report Type: Spontaneous
  Country: CA (occurrence: CA)
  Receive Date: 20080818
  Receipt Date: 20130124
  Transmission Date: 20140127
  Serious: Yes (Other)
  Sender: FDA-Public Use
  Company Number: CA-RANBAXY-2008US-17159

PATIENT
  Age: 48 Year
  Sex: Female

DRUGS (1)
  1. MINOCYCLINE HYDROCHLORIDE [Suspect]
     Indication: MULTIPLE SCLEROSIS
     Dosage: 100 MG, BID
     Route: 048

REACTIONS (3)
  - Carotid artery dissection [Unknown]
  - Ischaemic cerebral infarction [Unknown]
  - Off label use [Unknown]
